FAERS Safety Report 8848111 (Version 1)
Quarter: 2012Q4

REPORT INFORMATION
  Report Type: 
  Country: US (occurrence: US)
  Receive Date: 20121018
  Receipt Date: 20121018
  Transmission Date: 20130627
  Serious: Yes (Hospitalization)
  Sender: FDA-Public Use
  Company Number: US-ROCHE-1138981

PATIENT
  Sex: Male
  Weight: 45.36 kg

DRUGS (1)
  1. PROTROPIN [Suspect]
     Indication: DWARFISM
     Dosage: 0.3 mg/kg/wk, diluted with 2 cc diluent
     Route: 058

REACTIONS (2)
  - Suicide attempt [Unknown]
  - Mental disorder [Unknown]
